FAERS Safety Report 10902781 (Version 1)
Quarter: 2015Q1

REPORT INFORMATION
  Report Type: Spontaneous
  Country: TW (occurrence: TW)
  Receive Date: 20150310
  Receipt Date: 20150310
  Transmission Date: 20150721
  Serious: Yes (Hospitalization, Other)
  Sender: FDA-Public Use
  Company Number: TW-BAXTER-2015BAX013463

PATIENT
  Age: 62 Year
  Sex: Male

DRUGS (4)
  1. 0.9% SODIUM CHLORIDE [Suspect]
     Active Substance: SODIUM CHLORIDE
     Indication: BLADDER IRRIGATION
     Route: 065
  2. ENDOXAN SUGAR-COATED TABLETS [Suspect]
     Active Substance: CYCLOPHOSPHAMIDE
     Indication: MUSCULAR WEAKNESS
     Route: 048
  3. ENDOXAN SUGAR-COATED TABLETS [Suspect]
     Active Substance: CYCLOPHOSPHAMIDE
     Indication: THYMOMA
  4. UROMITEXAN [Suspect]
     Active Substance: MESNA
     Indication: CYSTITIS HAEMORRHAGIC
     Route: 042

REACTIONS (3)
  - Bladder transitional cell carcinoma [Unknown]
  - Cystitis haemorrhagic [Recovered/Resolved]
  - Haemorrhage [Recovered/Resolved]
